FAERS Safety Report 6240226-8 (Version None)
Quarter: 2009Q2

REPORT INFORMATION
  Report Type: 
  Country: None (occurrence: None)
  Receive Date: 20090623
  Receipt Date: 20080415
  Transmission Date: 20091009
  Serious: No
  Sender: FDA-Public Use
  Company Number: US-ASTRAZENECA-2008UW07659

PATIENT
  Sex: Female

DRUGS (3)
  1. PULMICORT FLEXHALER [Suspect]
     Indication: MULTIPLE ALLERGIES
     Route: 055
     Dates: start: 20070101
  2. SINGULAIR [Concomitant]
  3. ZYRTEC [Concomitant]

REACTIONS (5)
  - ANXIETY [None]
  - DRY MOUTH [None]
  - DYSGEUSIA [None]
  - EPISTAXIS [None]
  - HYPERTONIA [None]
